FAERS Safety Report 5421563-3 (Version None)
Quarter: 2007Q3

REPORT INFORMATION
  Report Type: 
  Country: None (occurrence: None)
  Receive Date: 20070821
  Receipt Date: 20070809
  Transmission Date: 20080115
  Serious: Yes (Life-Threatening, Other)
  Sender: FDA-Public Use
  Company Number: GB-PFIZER INC-2004058895

PATIENT
  Age: 50 Year
  Sex: Female
  Weight: 62 kg

DRUGS (6)
  1. LYRICA [Suspect]
     Indication: NEUROPATHY
     Route: 048
     Dates: start: 20040819, end: 20040820
  2. LYRICA [Suspect]
     Indication: NEURALGIA
  3. CODEINE PHOSPHATE AND ACETAMINOPHEN [Concomitant]
     Route: 065
  4. CELECOXIB [Concomitant]
     Route: 048
  5. ASPIRIN [Concomitant]
  6. MEBEVERINE [Concomitant]

REACTIONS (16)
  - AGITATION [None]
  - CHILLS [None]
  - CONVULSION [None]
  - DIZZINESS [None]
  - DYSPNOEA [None]
  - FEELING DRUNK [None]
  - HALLUCINATION, VISUAL [None]
  - HEADACHE [None]
  - HOT FLUSH [None]
  - HYPERTENSION [None]
  - LOSS OF CONSCIOUSNESS [None]
  - MALAISE [None]
  - SEDATION [None]
  - SPEECH DISORDER [None]
  - TRANSIENT ISCHAEMIC ATTACK [None]
  - TUNNEL VISION [None]
